FAERS Safety Report 7358201-9 (Version None)
Quarter: 2011Q1

REPORT INFORMATION
  Report Type: 
  Country: None (occurrence: None)
  Receive Date: 20110317
  Receipt Date: 20110308
  Transmission Date: 20110831
  Serious: Yes (Other)
  Sender: FDA-Public Use
  Company Number: JP-ROCHE-715060

PATIENT
  Age: 52 Year
  Sex: Male

DRUGS (7)
  1. VALGANCICLOVIR [Suspect]
     Indication: ANTIVIRAL PROPHYLAXIS
     Dosage: THERAPY DURATION: 3 WEEK.
     Route: 048
  2. PREDNISOLONE [Suspect]
     Indication: IMMUNOSUPPRESSION
     Route: 065
  3. DENOSINE IV [Suspect]
     Indication: IMMUNOSUPPRESSION
     Route: 042
  4. AZANIN [Suspect]
     Indication: IMMUNOSUPPRESSION
     Route: 065
  5. TACROLIMUS HYDRATE [Suspect]
     Dosage: LATER CONTROLLED BELOW 10NG/ML WITH THE DOSES CORRECTED FOR RENAL FUNCTION
     Route: 065
  6. TACROLIMUS HYDRATE [Suspect]
     Indication: IMMUNOSUPPRESSION
     Dosage: MAINTAINED BETWEEN 10 AND 15 NG/ML,
     Route: 065
  7. ACYCLOVIR [Suspect]
     Indication: ANTIVIRAL PROPHYLAXIS
     Route: 048

REACTIONS (1)
  - EPSTEIN-BARR VIRUS ASSOCIATED LYMPHOPROLIFERATIVE DISORDER [None]
